FAERS Safety Report 10678065 (Version 1)
Quarter: 2014Q4

REPORT INFORMATION
  Report Type: Spontaneous
  Country: IT (occurrence: IT)
  Receive Date: 20141229
  Receipt Date: 20141229
  Transmission Date: 20150529
  Serious: Yes (Hospitalization)
  Sender: FDA-Public Use
  Company Number: IT-RANBAXY-2014RR-90750

PATIENT
  Age: 38 Year
  Sex: Female

DRUGS (3)
  1. FLUCONAZOLE. [Suspect]
     Active Substance: FLUCONAZOLE
     Indication: PRODUCT USED FOR UNKNOWN INDICATION
     Dosage: 800 MG, TOTAL
     Route: 048
     Dates: start: 20140511, end: 20140511
  2. AUGMENTIN [Suspect]
     Active Substance: AMOXICILLIN\CLAVULANATE POTASSIUM
     Indication: PRODUCT USED FOR UNKNOWN INDICATION
     Dosage: 2 G, TOTAL
     Route: 048
     Dates: start: 20140511, end: 20140511
  3. LOPEMID [Suspect]
     Active Substance: LOPERAMIDE HYDROCHLORIDE
     Indication: PRODUCT USED FOR UNKNOWN INDICATION
     Dosage: 60 MG, TOTAL
     Route: 048
     Dates: start: 20140511, end: 20140511

REACTIONS (3)
  - Drug abuse [Not Recovered/Not Resolved]
  - Renal failure [Not Recovered/Not Resolved]
  - Coagulopathy [Not Recovered/Not Resolved]

NARRATIVE: CASE EVENT DATE: 20140511
